FAERS Safety Report 19361401 (Version 1)
Quarter: 2021Q2

REPORT INFORMATION
  Report Type: Report from Study
  Country: JP (occurrence: JP)
  Receive Date: 20210601
  Receipt Date: 20210601
  Transmission Date: 20210717
  Serious: Yes (Other)
  Sender: FDA-Public Use
  Company Number: JP-HORIZON-BUP-0025-2015

PATIENT

DRUGS (22)
  1. BUPHENYL [Suspect]
     Active Substance: SODIUM PHENYLBUTYRATE
     Dosage: 0.6 G, TID
     Route: 048
     Dates: start: 20150627, end: 20151126
  2. DIAZOXIDE [Concomitant]
     Active Substance: DIAZOXIDE
     Dosage: 80 MG
     Route: 048
     Dates: start: 20160226, end: 20160421
  3. LIVACT [ISOLEUCINE;LEUCINE;VALINE] [Concomitant]
     Indication: PROPHYLAXIS
     Dosage: 12 G
     Route: 048
     Dates: start: 20150522, end: 20150626
  4. BUPHENYL [Suspect]
     Active Substance: SODIUM PHENYLBUTYRATE
     Dosage: 0.6 G, TID
     Route: 048
     Dates: start: 20141122, end: 20150424
  5. DIAZOXIDE [Concomitant]
     Active Substance: DIAZOXIDE
     Indication: CONGENITAL HYPERINSULINAEMIC HYPOGLYCAEMIA
     Dosage: 60 MG
     Route: 048
     Dates: start: 20150226
  6. EXCEGRAN [Concomitant]
     Active Substance: ZONISAMIDE
     Indication: PRODUCT USED FOR UNKNOWN INDICATION
     Dosage: 90 MG, UNK
     Route: 048
  7. BUPHENYL [Suspect]
     Active Substance: SODIUM PHENYLBUTYRATE
     Dosage: 1.0 G, TID
     Route: 048
  8. LIVACT [ISOLEUCINE;LEUCINE;VALINE] [Concomitant]
     Dosage: 10 G
     Route: 048
     Dates: start: 20150627, end: 20150827
  9. LIVACT [ISOLEUCINE;LEUCINE;VALINE] [Concomitant]
     Dosage: 5 G
     Route: 048
     Dates: start: 20150828
  10. BUPHENYL [Suspect]
     Active Substance: SODIUM PHENYLBUTYRATE
     Dosage: 0.65 G, TID
     Route: 048
     Dates: start: 20151127, end: 20160421
  11. BUPHENYL [Suspect]
     Active Substance: SODIUM PHENYLBUTYRATE
     Dosage: 0.683 G, TID
     Route: 048
     Dates: start: 20160422
  12. DIAZOXIDE [Concomitant]
     Active Substance: DIAZOXIDE
     Dosage: 90 MG
     Route: 048
     Dates: start: 20160422
  13. EXCEGRAN [Concomitant]
     Active Substance: ZONISAMIDE
     Dosage: 50 MG, QD
     Route: 048
  14. DIAZOXIDE [Concomitant]
     Active Substance: DIAZOXIDE
     Dosage: 65 MG
     Route: 048
     Dates: start: 20150227, end: 20151206
  15. DIAZOXIDE [Concomitant]
     Active Substance: DIAZOXIDE
     Dosage: 75 MG
     Route: 048
     Dates: start: 20151207, end: 20160225
  16. BUPHENYL [Suspect]
     Active Substance: SODIUM PHENYLBUTYRATE
     Dosage: 0.7 G, TID
     Route: 048
     Dates: start: 20150425, end: 20150626
  17. LIVACT [ISOLEUCINE;LEUCINE;VALINE] [Concomitant]
     Indication: ADVERSE EVENT
     Dosage: 10 G
     Route: 048
     Dates: start: 20150130, end: 20150521
  18. BUPHENYL [Suspect]
     Active Substance: SODIUM PHENYLBUTYRATE
     Indication: CONGENITAL HYPERINSULINAEMIC HYPOGLYCAEMIA
     Dosage: 0.4 G, BID
     Route: 048
     Dates: start: 20140708, end: 20140829
  19. BUPHENYL [Suspect]
     Active Substance: SODIUM PHENYLBUTYRATE
     Dosage: 0.4 G, TID
     Route: 048
     Dates: start: 20140830, end: 20141121
  20. BUPHENYL [Suspect]
     Active Substance: SODIUM PHENYLBUTYRATE
     Dosage: 0.77 G, TID
     Route: 048
  21. BUPHENYL [Suspect]
     Active Substance: SODIUM PHENYLBUTYRATE
     Dosage: 1.2 G, TID
     Route: 048
  22. BUPHENYL [Suspect]
     Active Substance: SODIUM PHENYLBUTYRATE
     Dosage: 1.33 G, TID
     Route: 048
     Dates: start: 20190920

REACTIONS (5)
  - Hypoglycaemia [Recovered/Resolved]
  - Off label use [Unknown]
  - Amino acid level decreased [Recovered/Resolved]
  - Amino acid level decreased [Recovered/Resolved]
  - Amino acid level decreased [Recovered/Resolved]

NARRATIVE: CASE EVENT DATE: 20141226
